FAERS Safety Report 10080016 (Version 2)
Quarter: 2014Q2

REPORT INFORMATION
  Report Type: Spontaneous
  Country: DE (occurrence: DE)
  Receive Date: 20140415
  Receipt Date: 20140415
  Transmission Date: 20141212
  Serious: Yes (Hospitalization, Other)
  Sender: FDA-Public Use
  Company Number: PHHY2014DE019331

PATIENT
  Sex: Male
  Weight: 90 kg

DRUGS (11)
  1. ELIDEL [Suspect]
     Dosage: UNK UKN, UNK
  2. ELIDEL [Suspect]
     Dosage: ONCE DAILY WAS INITIATED FOR BOTH EYES
  3. ELIDEL [Suspect]
     Dosage: EYE OINTMENT 1 X DAILY
  4. SANDIMMUN OPTORAL [Suspect]
     Indication: PEMPHIGOID
     Dosage: 125 MG, BID
  5. SANDIMMUN OPTORAL [Suspect]
     Indication: OFF LABEL USE
  6. SANDIMMUN OPTORAL [Suspect]
     Indication: OCULAR PEMPHIGOID
  7. DEXA SINE [Suspect]
     Dosage: LEFT EYE DEXA SINE EYE DROPS 5 X, RIGHT EYE DEXA SINE EYE DROPS 3 X DAILY
  8. DEXA SINE [Suspect]
     Dosage: TWICE DAILY FOR LEFT EYE
  9. DEXA SINE [Suspect]
     Dosage: EYE DROPS 5X DAILY RIGHT EYE AND 2 DROPS X DAILY LEFT EYE
  10. CELLCEPT [Suspect]
     Dosage: 1 G, BID
  11. SOTALOL [Concomitant]
     Indication: MYOCARDITIS
     Dosage: UNK UKN, UNK

REACTIONS (42)
  - Corneal endothelial cell loss [Unknown]
  - Corneal disorder [Unknown]
  - Corneal oedema [Unknown]
  - Spinal osteoarthritis [Unknown]
  - Hepatic haematoma [Unknown]
  - Metastases to liver [Unknown]
  - Hepatic lesion [Unknown]
  - Hepatic haemorrhage [Unknown]
  - Post procedural haemorrhage [Unknown]
  - Keratitis [Unknown]
  - Conjunctivitis [Unknown]
  - Eye irritation [Unknown]
  - Metastases to lymph nodes [Unknown]
  - Intraocular pressure decreased [Unknown]
  - Benign prostatic hyperplasia [Unknown]
  - Hepatic steatosis [Unknown]
  - Maculopathy [Unknown]
  - Gastrooesophageal reflux disease [Unknown]
  - Cholecystitis chronic [Unknown]
  - Pneumoconiosis [Unknown]
  - Haemoglobin decreased [Unknown]
  - Gastritis [Unknown]
  - General physical health deterioration [Unknown]
  - Hypertension [Unknown]
  - Hyperlipidaemia [Unknown]
  - Heart rate decreased [Unknown]
  - White blood cell count increased [Unknown]
  - Haemorrhoids [Unknown]
  - Ocular pemphigoid [Unknown]
  - Ulcerative keratitis [Unknown]
  - Symblepharon [Unknown]
  - Gastrooesophageal cancer [Unknown]
  - Oesophageal adenocarcinoma [Unknown]
  - Abdominal adhesions [Unknown]
  - Fatigue [Unknown]
  - Vomiting [Unknown]
  - Decreased appetite [Unknown]
  - Weight decreased [Unknown]
  - Optic atrophy [Unknown]
  - Amaurosis [Unknown]
  - Visual acuity reduced [Unknown]
  - Corneal erosion [Unknown]
